FAERS Safety Report 7249294-8 (Version None)
Quarter: 2011Q1

REPORT INFORMATION
  Report Type: 
  Country: None (occurrence: None)
  Receive Date: 20110128
  Receipt Date: 20101210
  Transmission Date: 20110831
  Serious: Yes (Hospitalization, Other)
  Sender: FDA-Public Use
  Company Number: JP-BAYER-2010-003653

PATIENT
  Age: 77 Year
  Sex: Male

DRUGS (4)
  1. ASPIRIN [Suspect]
     Indication: PULMONARY EMBOLISM
     Dosage: 100 UNK, UNK
     Dates: start: 20100401
  2. WARFARIN SODIUM [Suspect]
     Indication: PULMONARY EMBOLISM
     Dosage: UNK
     Dates: start: 20100401
  3. ASPIRIN [Suspect]
     Indication: MYOCARDIAL ISCHAEMIA
  4. WARFARIN SODIUM [Suspect]
     Indication: MYOCARDIAL ISCHAEMIA

REACTIONS (2)
  - UPPER GASTROINTESTINAL HAEMORRHAGE [None]
  - LIPOMA [None]
